FAERS Safety Report 8541724-4 (Version None)
Quarter: 2012Q3

REPORT INFORMATION
  Report Type: 
  Country: None (occurrence: None)
  Receive Date: 20120726
  Receipt Date: 20120719
  Transmission Date: 20120928
  Serious: Yes (Other)
  Sender: FDA-Public Use
  Company Number: CN-BAXTER-2012BAX012149

PATIENT
  Sex: Male
  Weight: 15 kg

DRUGS (1)
  1. 10% GLUCOSE  INJECTION [Suspect]
     Route: 041
     Dates: start: 20090325, end: 20090325

REACTIONS (4)
  - PALLOR [None]
  - CHEST DISCOMFORT [None]
  - VOMITING [None]
  - CYANOSIS [None]
